FAERS Safety Report 22314355 (Version 1)
Quarter: 2023Q2

REPORT INFORMATION
  Report Type: Spontaneous
  Country: US (occurrence: US)
  Receive Date: 20230512
  Receipt Date: 20230512
  Transmission Date: 20230721
  Serious: Yes (Death)
  Sender: FDA-Public Use
  Company Number: US-TORRENT-00012648

PATIENT
  Age: 59 Year
  Sex: Male

DRUGS (3)
  1. LACTULOSE [Suspect]
     Active Substance: LACTULOSE
     Indication: Hyperammonaemia
     Dosage: UNKNOWN
     Route: 065
  2. PHENYL ACETATE [Suspect]
     Active Substance: PHENYL ACETATE
     Indication: Hyperammonaemia
     Dosage: UNKNOWN
     Route: 065
  3. SODIUM BENZOATE [Suspect]
     Active Substance: SODIUM BENZOATE
     Indication: Hyperammonaemia
     Dosage: UNKNOWN
     Route: 065

REACTIONS (1)
  - Drug ineffective [Fatal]
